FAERS Safety Report 5853341-5 (Version None)
Quarter: 2008Q3

REPORT INFORMATION
  Report Type: 
  Country: None (occurrence: None)
  Receive Date: 20080821
  Receipt Date: 20080807
  Transmission Date: 20090109
  Serious: Yes (Death)
  Sender: FDA-Public Use
  Company Number: JP-ABBOTT-07P-087-0378617-00

PATIENT
  Age: 79 Year
  Sex: Male

DRUGS (5)
  1. LEUPLIN SR FOR INJECTION KIT [Suspect]
     Indication: PROSTATE CANCER STAGE III
     Route: 058
     Dates: start: 20060920, end: 20070322
  2. OXYCODONE HCL [Concomitant]
     Indication: PAIN
     Route: 048
     Dates: start: 20070226, end: 20070418
  3. OXYCODONE HCL [Concomitant]
  4. FENTANYL-25 [Concomitant]
     Indication: RENAL CANCER
     Route: 062
     Dates: start: 20070419, end: 20070504
  5. FENTANYL-25 [Concomitant]

REACTIONS (1)
  - RENAL CANCER [None]
